FAERS Safety Report 8911883 (Version 2)
Quarter: 2012Q4

REPORT INFORMATION
  Report Type: 
  Country: MD (occurrence: MD)
  Receive Date: 20121115
  Receipt Date: 20121221
  Transmission Date: 20130627
  Serious: Yes (Life-Threatening, Hospitalization, Disabling, Other)
  Sender: FDA-Public Use
  Company Number: MD-GLAXOSMITHKLINE-B0844284A

PATIENT
  Age: 50 Year
  Sex: Female
  Weight: 66 kg

DRUGS (2)
  1. TIMENTIN [Suspect]
     Indication: SEPSIS
     Dosage: 3.2G Four times per day
     Route: 065
     Dates: start: 20121101, end: 20121107
  2. CIPROFLOXACIN [Concomitant]
     Dosage: 200MG Twice per day

REACTIONS (3)
  - Hyperthermia [Not Recovered/Not Resolved]
  - Leukocytosis [Not Recovered/Not Resolved]
  - Drug ineffective [Not Recovered/Not Resolved]
